FAERS Safety Report 6857482-5 (Version None)
Quarter: 2010Q3

REPORT INFORMATION
  Report Type: 
  Country: None (occurrence: None)
  Receive Date: 20100719
  Receipt Date: 20080118
  Transmission Date: 20110219
  Serious: No
  Sender: FDA-Public Use
  Company Number: US-PFIZER INC-2008008413

PATIENT
  Sex: Female
  Weight: 61.2 kg

DRUGS (3)
  1. CHANTIX [Suspect]
     Indication: SMOKING CESSATION THERAPY
  2. COMBIVENT [Concomitant]
     Indication: EMPHYSEMA
     Route: 055
  3. TUMS [Concomitant]

REACTIONS (3)
  - MALAISE [None]
  - MOOD SWINGS [None]
  - NAUSEA [None]
